FAERS Safety Report 8232335-9 (Version None)
Quarter: 2012Q1

REPORT INFORMATION
  Report Type: 
  Country: None (occurrence: None)
  Receive Date: 20120323
  Receipt Date: 20120319
  Transmission Date: 20120608
  Serious: Yes (Hospitalization, Congenital Anomaly)
  Sender: FDA-Public Use
  Company Number: US-GLAXOSMITHKLINE-A0934110A

PATIENT
  Sex: Female

DRUGS (4)
  1. PAROXETINE HCL [Suspect]
     Indication: DEPRESSION
     Route: 064
  2. MULTI-VITAMINS [Concomitant]
  3. PAXIL [Suspect]
     Indication: DEPRESSION
     Dosage: 20MG UNKNOWN
     Route: 064
     Dates: start: 20020201, end: 20050101
  4. MACROBID [Concomitant]

REACTIONS (5)
  - FOETAL EXPOSURE DURING PREGNANCY [None]
  - ARNOLD-CHIARI MALFORMATION [None]
  - CEREBRAL VENTRICLE DILATATION [None]
  - SPINA BIFIDA [None]
  - MENINGOMYELOCELE [None]
